FAERS Safety Report 10811959 (Version 1)
Quarter: 2015Q1

REPORT INFORMATION
  Report Type: Report from Study
  Country: GR (occurrence: GR)
  Receive Date: 20150217
  Receipt Date: 20150217
  Transmission Date: 20150721
  Serious: Yes (Life-Threatening, Hospitalization)
  Sender: FDA-Public Use
  Company Number: GR-ABBVIE-14P-066-1313434-00

PATIENT
  Age: 76 Year
  Sex: Female

DRUGS (3)
  1. DUODOPA [Suspect]
     Active Substance: CARBIDOPA\LEVODOPA
     Indication: PARKINSON^S DISEASE
     Dosage: MORNING DOSE 10 ML CONTIN RATE 2.5 ML/H
     Route: 050
     Dates: start: 20140506, end: 20141125
  2. DUODOPA [Suspect]
     Active Substance: CARBIDOPA\LEVODOPA
     Route: 050
     Dates: start: 20141203
  3. LEVIN [Concomitant]
     Indication: EATING DISORDER

REACTIONS (3)
  - Abasia [Recovering/Resolving]
  - Dystonia [Recovering/Resolving]
  - Lung infection [Recovered/Resolved]

NARRATIVE: CASE EVENT DATE: 20141116
